FAERS Safety Report 16497405 (Version 1)
Quarter: 2019Q2

REPORT INFORMATION
  Report Type: Spontaneous
  Country: CN (occurrence: CN)
  Receive Date: 20190628
  Receipt Date: 20190628
  Transmission Date: 20190711
  Serious: Yes (Other)
  Sender: FDA-Public Use
  Company Number: CN-BAXTER-2019BAX012803

PATIENT
  Age: 52 Year
  Sex: Female
  Weight: 37.5 kg

DRUGS (8)
  1. 0.9% SODIUM CHLORIDE INJECTION [Suspect]
     Active Substance: SODIUM CHLORIDE
     Dosage: DOSE RE-INTRODUCED. CYCLOPHOSPHAMIDE + 0.9% SODIUM CHLORIDE
     Route: 041
  2. 5% GLUCOSE  INJECTION [Suspect]
     Active Substance: DEXTROSE
     Indication: MEDICATION DILUTION
     Dosage: PIRARUBICIN HYDROCHLORIDE 63 MG + 5% GLUCOSE
     Route: 041
     Dates: start: 20190518, end: 20190518
  3. 5% GLUCOSE  INJECTION [Suspect]
     Active Substance: DEXTROSE
     Dosage: DOSE RE-INTRODUCED, PIRARUBICIN HYDROCHLORIDE + 5% GLUCOSE
     Route: 041
  4. ENDOXAN [Suspect]
     Active Substance: CYCLOPHOSPHAMIDE
     Dosage: DOSE RE-INTRODUCED. CYCLOPHOSPHAMIDE + 0.9% SODIUM CHLORIDE
     Route: 041
  5. ENDOXAN [Suspect]
     Active Substance: CYCLOPHOSPHAMIDE
     Indication: BREAST CANCER
     Dosage: CYCLOPHOSPHAMIDE + 0.9% SODIUM CHLORIDE 100 ML
     Route: 041
     Dates: start: 20190518, end: 20190518
  6. 0.9% SODIUM CHLORIDE INJECTION [Suspect]
     Active Substance: SODIUM CHLORIDE
     Indication: MEDICATION DILUTION
     Dosage: CYCLOPHOSPHAMIDE 760 MG + 0.9% SODIUM CHLORIDE
     Route: 041
     Dates: start: 20190518, end: 20190518
  7. PIRARUBICIN HYDROCHLORIDE [Suspect]
     Active Substance: PIRARUBICIN HYDROCHLORIDE
     Dosage: DRUG RE-INTRODUCED. PIRARUBICIN HYDROCHLORIDE + 5% GLUCOSE
     Route: 041
  8. PIRARUBICIN HYDROCHLORIDE [Suspect]
     Active Substance: PIRARUBICIN HYDROCHLORIDE
     Indication: BREAST CANCER
     Dosage: PIRARUBICIN HYDROCHLORIDE + 5% GLUCOSE 250 ML
     Route: 041
     Dates: start: 20190518, end: 20190518

REACTIONS (1)
  - Bone marrow failure [Recovered/Resolved]

NARRATIVE: CASE EVENT DATE: 20190606
